FAERS Safety Report 7428011-2 (Version None)
Quarter: 2011Q2

REPORT INFORMATION
  Report Type: 
  Country: None (occurrence: None)
  Receive Date: 20110412
  Receipt Date: 20110330
  Transmission Date: 20111010
  Serious: Yes (Life-Threatening, Hospitalization)
  Sender: FDA-Public Use
  Company Number: 2011000446

PATIENT
  Age: 72 Year
  Sex: Female
  Weight: 56.4275 kg

DRUGS (5)
  1. GLUCOSAMINE (GLUCOSAMINE) [Concomitant]
  2. ERLOTINIB (ERLOTINIB) (TABLET) (ERLOTINIB) [Suspect]
     Indication: LUNG CANCER METASTATIC
     Dosage: (150 MG,DAILY),ORAL
     Route: 048
     Dates: start: 20101216, end: 20110111
  3. SIMVASTATIN [Concomitant]
  4. LOVASTATIN [Concomitant]
  5. PAZOPANIB/PLACEBO [Suspect]
     Indication: LUNG CANCER METASTATIC
     Dosage: (600 MG,DAILY),ORAL
     Route: 048
     Dates: start: 20101216, end: 20110111

REACTIONS (2)
  - ANAEMIA [None]
  - OESOPHAGEAL ULCER [None]
